FAERS Safety Report 24763940 (Version 1)
Quarter: 2024Q4

REPORT INFORMATION
  Report Type: Spontaneous
  Country: US (occurrence: US)
  Receive Date: 20241223
  Receipt Date: 20241223
  Transmission Date: 20250114
  Serious: No
  Sender: COLLEGIUM PHARMACEUTICAL
  Company Number: US-COLLEGIUM PHARMACEUTICAL, INC.-20240500390

PATIENT

DRUGS (5)
  1. NUCYNTA [Suspect]
     Active Substance: TAPENTADOL HYDROCHLORIDE
     Indication: Congenital musculoskeletal disorder of spine
     Dosage: 50 MILLIGRAM, ONE TABLET THREE TIMES A DAY
     Route: 065
     Dates: start: 2017
  2. ESTRADIOL;PROGESTERONE [Concomitant]
     Indication: Product used for unknown indication
     Dosage: UNK UNK, QD  (ONCE A DAY IN THE MORNING)
     Route: 065
  3. BACLOFEN [Concomitant]
     Active Substance: BACLOFEN
     Indication: Product used for unknown indication
     Dosage: UNK UNK, QD (ONCE A DAY AT NIGHT)
     Route: 065
  4. SOMA [Concomitant]
     Active Substance: CARISOPRODOL
     Indication: Product used for unknown indication
     Dosage: UNK UNK, QD (ONCE A DAY AT NIGHT)
     Route: 065
  5. NEURONTIN [Concomitant]
     Active Substance: GABAPENTIN
     Indication: Product used for unknown indication
     Dosage: 100 MILLIGRAM, QD (ONCE AT NIGHT)
     Route: 065

REACTIONS (2)
  - Drug screen negative [Not Recovered/Not Resolved]
  - Incorrect dose administered [Not Recovered/Not Resolved]

NARRATIVE: CASE EVENT DATE: 20170101
